FAERS Safety Report 8990305 (Version 2)
Quarter: 2013Q1

REPORT INFORMATION
  Report Type: Spontaneous
  Country: US (occurrence: US)
  Receive Date: 20121228
  Receipt Date: 20130108
  Transmission Date: 20140127
  Serious: Yes (Death, Hospitalization)
  Sender: FDA-Public Use
  Company Number: US-B.I. PHARMACEUTICALS,INC./RIDGEFIELD-2012-BI-03933BP

PATIENT
  Sex: Male

DRUGS (17)
  1. SPIRIVA [Suspect]
     Indication: CHRONIC OBSTRUCTIVE PULMONARY DISEASE
     Dosage: 18 MCG
     Route: 055
     Dates: start: 201111
  2. K DUR [Concomitant]
     Dosage: 40 MEQ
  3. TAZOBACTAM [Concomitant]
  4. NYSTATIN [Concomitant]
  5. FLOMAX [Concomitant]
  6. PROTONIX [Concomitant]
  7. AMBIEN [Concomitant]
  8. LIPITOR [Concomitant]
  9. SYMBICORT [Concomitant]
  10. TOPROL [Concomitant]
  11. MUCINEX [Concomitant]
  12. TYLENOL [Concomitant]
  13. ZOFRAN [Concomitant]
  14. PROVENTIL [Concomitant]
  15. PREDNISONE [Concomitant]
  16. CARDIZEM [Concomitant]
  17. VANCOMYCIN [Concomitant]

REACTIONS (4)
  - Cardiac arrest [Fatal]
  - Lung neoplasm malignant [Fatal]
  - Sepsis [Unknown]
  - Bradycardia [Unknown]
